FAERS Safety Report 11624809 (Version 2)
Quarter: 2015Q4

REPORT INFORMATION
  Report Type: Spontaneous
  Country: JP (occurrence: JP)
  Receive Date: 20151013
  Receipt Date: 20151123
  Transmission Date: 20160304
  Serious: Yes (Other)
  Sender: FDA-Public Use
  Company Number: JP-BAYER-2015-436199

PATIENT
  Age: 61 Year
  Sex: Male
  Weight: 68.1 kg

DRUGS (7)
  1. GLACTIV [Concomitant]
     Active Substance: SITAGLIPTIN
     Indication: DIABETES MELLITUS
     Dosage: DAILY DOSE 50 MG
     Route: 048
  2. MICARDIS [Concomitant]
     Active Substance: TELMISARTAN
     Indication: HYPERTENSION
     Dosage: DAILY DOSE 40 MG
     Route: 048
  3. NEXAVAR [Suspect]
     Active Substance: SORAFENIB
     Indication: HEPATOCELLULAR CARCINOMA
     Dosage: 400 MG, QD
     Route: 048
     Dates: start: 20140109, end: 20141209
  4. AMARYL [Concomitant]
     Active Substance: GLIMEPIRIDE
     Indication: DIABETES MELLITUS
     Dosage: DAILY DOSE 1 MG
     Route: 048
  5. GASTER [Concomitant]
     Active Substance: FAMOTIDINE
     Indication: GASTRIC ULCER
     Dosage: DAILY DOSE 20 MG
     Route: 048
  6. NEXAVAR [Suspect]
     Active Substance: SORAFENIB
     Indication: HEPATOCELLULAR CARCINOMA
     Dosage: UNK
  7. NORVASC [Concomitant]
     Active Substance: AMLODIPINE BESYLATE
     Indication: HYPERTENSION
     Dosage: DAILY DOSE 5 MG
     Route: 048

REACTIONS (2)
  - Hepatic failure [None]
  - Rash [Recovered/Resolved]

NARRATIVE: CASE EVENT DATE: 20140120
